FAERS Safety Report 4646980-0 (Version None)
Quarter: 2005Q2

REPORT INFORMATION
  Report Type: 
  Country: None (occurrence: None)
  Receive Date: 20050331
  Receipt Date: 20050210
  Transmission Date: 20051028
  Serious: No
  Sender: FDA-Public Use
  Company Number: 05P-163-0290552-00

PATIENT
  Age: 66 Year
  Sex: Male
  Weight: 84.8226 kg

DRUGS (17)
  1. HUMIRA [Suspect]
     Indication: RHEUMATOID ARTHRITIS
     Dosage: 40 MG, 1 IN 2 WK, SUBCUTANEOUS
     Route: 058
     Dates: start: 20041201, end: 20050210
  2. PREDNISONE [Concomitant]
  3. FOSINOPRIL SODIUM [Concomitant]
  4. ZOCOR [Concomitant]
  5. ACETYLSALICYLIC ACID [Concomitant]
  6. MULTIVITAMIN [Concomitant]
  7. RANITIDINE [Concomitant]
  8. POTASSIUM CHLORIDE [Concomitant]
  9. NIFEDIPINE [Concomitant]
  10. ALUMINUM HYDROXIDE AND MAGNESIUM TRISILICATE [Concomitant]
  11. BUMETANIDE [Concomitant]
  12. DOXYCYCLINE [Concomitant]
  13. SALBUTAMOL [Concomitant]
  14. FUNISOLIDE [Concomitant]
  15. NYSTATIN [Concomitant]
  16. CLONAZEPAM [Concomitant]
  17. TRAMADOL [Concomitant]

REACTIONS (2)
  - COUGH [None]
  - DYSPNOEA [None]
